FAERS Safety Report 5889937-4 (Version None)
Quarter: 2008Q3

REPORT INFORMATION
  Report Type: 
  Country: None (occurrence: None)
  Receive Date: 20080919
  Receipt Date: 20080916
  Transmission Date: 20090109
  Serious: Yes (Death, Hospitalization)
  Sender: FDA-Public Use
  Company Number: PHHY2008JP21615

PATIENT
  Age: 57 Year
  Sex: Male

DRUGS (3)
  1. ZOMETA [Suspect]
     Indication: METASTASES TO BONE
     Route: 042
  2. ADRENOCORTICOTROPHIC HORMONE [Concomitant]
  3. WARFARIN SODIUM [Concomitant]

REACTIONS (3)
  - CARDIAC FAILURE [None]
  - OSTEONECROSIS [None]
  - PAIN IN JAW [None]
